FAERS Safety Report 5417762-7 (Version None)
Quarter: 2007Q3

REPORT INFORMATION
  Report Type: 
  Country: None (occurrence: None)
  Receive Date: 20070815
  Receipt Date: 20070815
  Transmission Date: 20080115
  Serious: Yes (Hospitalization)
  Sender: FDA-Public Use
  Company Number: None

PATIENT
  Sex: Male
  Weight: 77.1115 kg

DRUGS (8)
  1. HUMULIN R [Suspect]
     Indication: DIABETES MELLITUS
     Dosage: (THERAPY DATES: PRIOR TO ADMISSION)
  2. INSPRA [Concomitant]
  3. NITROGLYCERIN [Concomitant]
  4. LASIX [Concomitant]
  5. AMBIEN [Concomitant]
  6. ZOCOR [Concomitant]
  7. APIDRA [Suspect]
  8. HYDRIN [Concomitant]

REACTIONS (1)
  - UNRESPONSIVE TO STIMULI [None]
